FAERS Safety Report 4558765-4 (Version None)
Quarter: 2005Q1

REPORT INFORMATION
  Report Type: 
  Country: None (occurrence: None)
  Receive Date: 20050119
  Receipt Date: 20050105
  Transmission Date: 20050727
  Serious: Yes (Other)
  Sender: FDA-Public Use
  Company Number: USA-05-0001-STR

PATIENT
  Sex: Male

DRUGS (1)
  1. STRIANT [Suspect]

REACTIONS (3)
  - CHEST PAIN [None]
  - HALLUCINATION [None]
  - STOMACH DISCOMFORT [None]
